FAERS Safety Report 5211486-7 (Version None)
Quarter: 2007Q1

REPORT INFORMATION
  Report Type: 
  Country: None (occurrence: None)
  Receive Date: 20070112
  Receipt Date: 20070108
  Transmission Date: 20070707
  Serious: Yes (Hospitalization, Other)
  Sender: FDA-Public Use
  Company Number: 163-20785-07010355

PATIENT
  Age: 78 Year
  Sex: Male

DRUGS (1)
  1. THALOMID [Suspect]
     Indication: MULTIPLE MYELOMA
     Dosage: 200 MG, 2 IN 1 D, ORAL
     Route: 048
     Dates: start: 20061226, end: 20061201

REACTIONS (2)
  - INTUBATION [None]
  - LOSS OF CONSCIOUSNESS [None]
